FAERS Safety Report 8765579 (Version 1)
Quarter: 2012Q4

REPORT INFORMATION
  Report Type: 
  Country: US (occurrence: US)
  Receive Date: 20120903
  Receipt Date: 20120903
  Transmission Date: 20130627
  Serious: No
  Sender: FDA-Public Use
  Company Number: US-ROXANE LABORATORIES, INC.-2012-RO-01711RO

PATIENT
  Sex: Male

DRUGS (5)
  1. ROPINIROLE [Suspect]
     Indication: RESTLESSNESS
     Dosage: 1 mg
     Route: 048
     Dates: start: 201208
  2. NEXIUM [Concomitant]
  3. AMBIEN [Concomitant]
     Indication: SLEEP DISORDER
  4. EFFEXOR [Concomitant]
     Indication: DEPRESSION
  5. LEXAPRO [Concomitant]
     Indication: DEPRESSION

REACTIONS (5)
  - Hyperhidrosis [Not Recovered/Not Resolved]
  - Muscle twitching [Not Recovered/Not Resolved]
  - Tremor [Not Recovered/Not Resolved]
  - Dyspnoea [Not Recovered/Not Resolved]
  - Chest discomfort [Not Recovered/Not Resolved]
